FAERS Safety Report 16006869 (Version 1)
Quarter: 2019Q1

REPORT INFORMATION
  Report Type: Spontaneous
  Country: RO (occurrence: RO)
  Receive Date: 20190222
  Receipt Date: 20190222
  Transmission Date: 20190418
  Serious: Yes (Death)
  Sender: FDA-Public Use
  Company Number: RO-ASTRAZENECA-2019SE30123

PATIENT
  Age: 74 Year
  Sex: Male

DRUGS (10)
  1. ASA [Concomitant]
     Active Substance: ASPIRIN
  2. BISOPROLOL [Concomitant]
     Active Substance: BISOPROLOL
  3. MICARDIS [Concomitant]
     Active Substance: TELMISARTAN
  4. INSULIN [Concomitant]
     Active Substance: INSULIN NOS
  5. OMERAN [Concomitant]
  6. OLICARD [Concomitant]
     Active Substance: ISOSORBIDE MONONITRATE
  7. PREDUCTAL [Concomitant]
     Active Substance: TRIMETAZIDINE DIHYDROCHLORIDE
  8. BRILIQUE [Suspect]
     Active Substance: TICAGRELOR
     Indication: ANGINA UNSTABLE
     Dosage: LOADING DOSE 180 MG
     Route: 048
  9. BRILIQUE [Suspect]
     Active Substance: TICAGRELOR
     Indication: ANGINA UNSTABLE
     Route: 048
     Dates: start: 201901
  10. SORTIS [Concomitant]
     Active Substance: ATORVASTATIN

REACTIONS (1)
  - Death [Fatal]
